FAERS Safety Report 7029536-4 (Version None)
Quarter: 2010Q3

REPORT INFORMATION
  Report Type: 
  Country: None (occurrence: None)
  Receive Date: 20100930
  Receipt Date: 20100922
  Transmission Date: 20110219
  Serious: Yes (Life-Threatening, Hospitalization, Other)
  Sender: FDA-Public Use
  Company Number: 2010AC000303

PATIENT
  Age: 65 Year
  Sex: Male

DRUGS (13)
  1. DIGOXIN [Suspect]
     Dosage: PO
     Route: 048
     Dates: start: 20060301, end: 20080601
  2. DIGOXIN [Suspect]
     Indication: CARDIAC DISORDER
     Dosage: 0.125 MG;BID;PO
     Route: 048
     Dates: start: 20050201, end: 20080304
  3. DIGOXIN [Suspect]
     Dosage: 0125 MG;QD;PO
     Route: 048
     Dates: start: 20080307
  4. ALDACTONE [Concomitant]
  5. CLARITIN [Concomitant]
  6. COREG [Concomitant]
  7. TRAZODONE HCL [Concomitant]
  8. LASIX [Concomitant]
  9. MG OXIDE [Concomitant]
  10. PROTONIX [Concomitant]
  11. ZOCOR [Concomitant]
  12. COUMADIN [Concomitant]
  13. ASPIRIN [Concomitant]

REACTIONS (12)
  - ANXIETY [None]
  - CARDIAC DISORDER [None]
  - CHEST PAIN [None]
  - DIZZINESS [None]
  - ECONOMIC PROBLEM [None]
  - HEADACHE [None]
  - HYPERHIDROSIS [None]
  - MULTIPLE INJURIES [None]
  - NAUSEA [None]
  - PAIN [None]
  - THERAPEUTIC AGENT TOXICITY [None]
  - VOMITING [None]
